FAERS Safety Report 11353952 (Version 1)
Quarter: 2015Q3

REPORT INFORMATION
  Report Type: Spontaneous
  Country: US (occurrence: US)
  Receive Date: 20150807
  Receipt Date: 20150807
  Transmission Date: 20151125
  Serious: No
  Sender: FDA-Public Use
  Company Number: US-JNJFOC-20150616029

PATIENT
  Age: 21 Year
  Sex: Female
  Weight: 108.86 kg

DRUGS (3)
  1. MENS ROGAINE UNSCENTED FORMULA [Suspect]
     Active Substance: MINOXIDIL
     Route: 061
  2. BIRTH CONTROL PILLS [Concomitant]
     Active Substance: UNSPECIFIED INGREDIENT
     Indication: CONTRACEPTION
     Dosage: ABOUT 3 MONTHS.
     Route: 065
  3. MENS ROGAINE UNSCENTED FORMULA [Suspect]
     Active Substance: MINOXIDIL
     Indication: ANDROGENETIC ALOPECIA
     Dosage: A HALF OR THIRD OF A CAP; ABOUT 6 MONTHS
     Route: 061
     Dates: start: 201501

REACTIONS (2)
  - Hair growth abnormal [Not Recovered/Not Resolved]
  - Wrong patient received medication [Not Recovered/Not Resolved]
